FAERS Safety Report 4830912-6 (Version None)
Quarter: 2005Q4

REPORT INFORMATION
  Report Type: 
  Country: None (occurrence: None)
  Receive Date: 20051117
  Receipt Date: 20050426
  Transmission Date: 20060501
  Serious: Yes (Disabling, Other)
  Sender: FDA-Public Use
  Company Number: US-MERCK-0504USA04783

PATIENT
  Age: 50 Year
  Sex: Female
  Weight: 59 kg

DRUGS (2)
  1. VIOXX [Suspect]
     Indication: BACK PAIN
     Route: 048
     Dates: start: 20010208
  2. VIOXX [Suspect]
     Route: 048
     Dates: end: 20030101

REACTIONS (21)
  - ADVERSE DRUG REACTION [None]
  - ANXIETY [None]
  - BLINDNESS [None]
  - CEREBROVASCULAR ACCIDENT [None]
  - CHEST PAIN [None]
  - CHOLELITHIASIS [None]
  - DEPRESSION [None]
  - HERPES ZOSTER OPHTHALMIC [None]
  - HYPERCHOLESTEROLAEMIA [None]
  - HYPERTENSION [None]
  - HYPOTHYROIDISM [None]
  - INJURY [None]
  - KERATITIS [None]
  - MYOCARDIAL INFARCTION [None]
  - OPTIC NEUROPATHY [None]
  - ORGAN FAILURE [None]
  - PAIN [None]
  - PULMONARY EMBOLISM [None]
  - RENAL CYST [None]
  - RETINAL VEIN OCCLUSION [None]
  - THROMBOSIS [None]
